FAERS Safety Report 5015024-3 (Version None)
Quarter: 2006Q2

REPORT INFORMATION
  Report Type: 
  Country: None (occurrence: None)
  Receive Date: 20060530
  Receipt Date: 20060522
  Transmission Date: 20061013
  Serious: Yes (Other)
  Sender: FDA-Public Use
  Company Number: 2006-05-0899

PATIENT
  Age: 81 Year
  Sex: Female
  Weight: 54.4316 kg

DRUGS (4)
  1. ASMANEX TWISTHALER [Suspect]
     Indication: ASTHMA
     Dosage: 220MCG 2 PUFF INHALATION
     Route: 055
     Dates: start: 20060329
  2. SINGULAIR [Concomitant]
  3. ASPIRIN [Concomitant]
  4. MULTIVITAMIN [Concomitant]

REACTIONS (2)
  - BLINDNESS TRANSIENT [None]
  - PHOTOPHOBIA [None]
